FAERS Safety Report 4790951-0 (Version None)
Quarter: 2005Q4

REPORT INFORMATION
  Report Type: 
  Country: None (occurrence: None)
  Receive Date: 20051005
  Receipt Date: 20051005
  Transmission Date: 20060501
  Serious: Yes (Life-Threatening)
  Sender: FDA-Public Use
  Company Number: None

PATIENT
  Age: 51 Year
  Sex: Male
  Weight: 99.5 kg

DRUGS (11)
  1. NATRECOR [Suspect]
     Indication: PULMONARY HYPERTENSION
     Dosage: 0.03 MCG/KG/MIN  HOURLY   IV DRIP
     Route: 041
     Dates: start: 20050820, end: 20050821
  2. NATRECOR [Suspect]
     Indication: TRANSPLANT EVALUATION
     Dosage: 0.03 MCG/KG/MIN  HOURLY   IV DRIP
     Route: 041
     Dates: start: 20050820, end: 20050821
  3. FLOLAN [Concomitant]
  4. MILRINONE [Concomitant]
  5. LIPITOR [Concomitant]
  6. LASIX [Concomitant]
  7. CAPOTEN [Concomitant]
  8. ASPIRIN [Concomitant]
  9. PLAVIX [Concomitant]
  10. LOVENOX [Concomitant]
  11. PROTONIX [Concomitant]

REACTIONS (1)
  - HYPOTENSION [None]
